FAERS Safety Report 25173586 (Version 1)
Quarter: 2025Q2

REPORT INFORMATION
  Report Type: Report from Study
  Country: HN (occurrence: HN)
  Receive Date: 20250408
  Receipt Date: 20250408
  Transmission Date: 20250716
  Serious: Yes (Other)
  Sender: NOVARTIS
  Company Number: HN-002147023-NVSC2025HN056930

PATIENT
  Age: 82 Year
  Sex: Female

DRUGS (2)
  1. EXFORGE HCT [Suspect]
     Active Substance: AMLODIPINE BESYLATE\HYDROCHLOROTHIAZIDE\VALSARTAN
     Indication: Hypertension
     Dosage: 10/320/25MG, QD
     Route: 048
     Dates: start: 20210215, end: 202408
  2. EXFORGE HCT [Suspect]
     Active Substance: AMLODIPINE BESYLATE\HYDROCHLOROTHIAZIDE\VALSARTAN
     Route: 065
     Dates: start: 202503

REACTIONS (4)
  - Drug intolerance [Unknown]
  - Blood pressure abnormal [Unknown]
  - Drug effect less than expected [Unknown]
  - Movement disorder [Unknown]

NARRATIVE: CASE EVENT DATE: 20240801
